FAERS Safety Report 8505921-6 (Version None)
Quarter: 2012Q3

REPORT INFORMATION
  Report Type: 
  Country: None (occurrence: None)
  Receive Date: 20120712
  Receipt Date: 20120705
  Transmission Date: 20120928
  Serious: Yes (Other)
  Sender: FDA-Public Use
  Company Number: US-ASTRAZENECA-2011SE44602

PATIENT
  Age: 48 Year
  Sex: Female

DRUGS (9)
  1. SEROQUEL [Suspect]
     Route: 048
  2. SEROQUEL [Suspect]
     Route: 048
  3. SEROQUEL [Suspect]
     Route: 048
  4. SEROQUEL [Suspect]
     Route: 048
  5. SEROQUEL [Suspect]
     Route: 048
  6. SEROQUEL [Suspect]
     Route: 048
  7. SEROQUEL [Suspect]
     Indication: INSOMNIA
     Route: 048
  8. SEROQUEL [Suspect]
     Indication: DEPRESSION
     Route: 048
  9. SEROQUEL [Suspect]
     Indication: BIPOLAR DISORDER
     Route: 048

REACTIONS (6)
  - ADVERSE EVENT [None]
  - DRUG DOSE OMISSION [None]
  - SUICIDAL IDEATION [None]
  - OFF LABEL USE [None]
  - VISUAL IMPAIRMENT [None]
  - ANXIETY [None]
